FAERS Safety Report 5974193-9 (Version None)
Quarter: 2008Q4

REPORT INFORMATION
  Report Type: 
  Country: None (occurrence: None)
  Receive Date: 20081125
  Receipt Date: 20081114
  Transmission Date: 20090506
  Serious: Yes (Other)
  Sender: FDA-Public Use
  Company Number: 2008JP004888

PATIENT
  Age: 54 Year
  Sex: Male

DRUGS (5)
  1. PROGRAF [Suspect]
     Indication: BONE MARROW TRANSPLANT
     Dosage: 1.2 MG UNKNOWN/D ORAL
     Route: 048
  2. BORTEZOMIB (BORTEZOMIB) FORMULATION UNKNOWN [Suspect]
     Dosage: 1.3 MG/M2 /D
     Dates: start: 20071101
  3. METHYLPREDNISOLONE [Suspect]
     Dosage: 1000MG, /D, IV NOS
     Route: 042
  4. PREDNISONE [Concomitant]
  5. DEXAMETHASONE TAB [Concomitant]

REACTIONS (5)
  - ASPARTATE AMINOTRANSFERASE INCREASED [None]
  - BLOOD BILIRUBIN UNCONJUGATED INCREASED [None]
  - BLOOD LACTATE DEHYDROGENASE INCREASED [None]
  - MICROANGIOPATHIC HAEMOLYTIC ANAEMIA [None]
  - THROMBOTIC MICROANGIOPATHY [None]
